FAERS Safety Report 10057121 (Version 3)
Quarter: 2014Q2

REPORT INFORMATION
  Report Type: Spontaneous
  Country: ES (occurrence: ES)
  Receive Date: 20140403
  Receipt Date: 20140410
  Transmission Date: 20141212
  Serious: Yes (Hospitalization)
  Sender: FDA-Public Use
  Company Number: ES-B.I. PHARMACEUTICALS,INC./RIDGEFIELD-2014-BI-09741ES

PATIENT
  Age: 53 Year
  Sex: Male
  Weight: 68.3 kg

DRUGS (2)
  1. TRAJENTA [Suspect]
     Indication: TYPE 2 DIABETES MELLITUS
     Route: 048
     Dates: start: 20140203, end: 20140213
  2. TRYPTIZOL 25 [Concomitant]
     Indication: RESTLESS LEGS SYNDROME
     Dosage: DOSE PER APPLICATION : 25
     Route: 048
     Dates: start: 201306

REACTIONS (1)
  - Urticaria [Recovered/Resolved]
